FAERS Safety Report 25478639 (Version 2)
Quarter: 2025Q3

REPORT INFORMATION
  Report Type: Spontaneous
  Country: US (occurrence: US)
  Receive Date: 20250625
  Receipt Date: 20250729
  Transmission Date: 20251021
  Serious: No
  Sender: MYLAN
  Company Number: US-MYLANLABS-2025M1052637

PATIENT
  Age: 70 Year
  Sex: Female

DRUGS (8)
  1. TYRVAYA [Suspect]
     Active Substance: VARENICLINE TARTRATE
     Indication: Dry eye
     Dosage: 0.03 MILLIGRAM, BID (TWICE A DAY)
     Dates: start: 20250619, end: 20250619
  2. TYRVAYA [Suspect]
     Active Substance: VARENICLINE TARTRATE
     Dosage: 0.03 MILLIGRAM, BID (TWICE A DAY)
     Route: 045
     Dates: start: 20250619, end: 20250619
  3. TYRVAYA [Suspect]
     Active Substance: VARENICLINE TARTRATE
     Dosage: 0.03 MILLIGRAM, BID (TWICE A DAY)
     Route: 045
     Dates: start: 20250619, end: 20250619
  4. TYRVAYA [Suspect]
     Active Substance: VARENICLINE TARTRATE
     Dosage: 0.03 MILLIGRAM, BID (TWICE A DAY)
     Dates: start: 20250619, end: 20250619
  5. PROGESTERONE [Concomitant]
     Active Substance: PROGESTERONE
  6. PROGESTERONE [Concomitant]
     Active Substance: PROGESTERONE
     Route: 065
  7. PROGESTERONE [Concomitant]
     Active Substance: PROGESTERONE
     Route: 065
  8. PROGESTERONE [Concomitant]
     Active Substance: PROGESTERONE

REACTIONS (4)
  - Dizziness [Not Recovered/Not Resolved]
  - Sneezing [Recovered/Resolved]
  - Fatigue [Unknown]
  - Feeling hot [Unknown]

NARRATIVE: CASE EVENT DATE: 20250619
